APPROVED DRUG PRODUCT: LAMOTRIGINE
Active Ingredient: LAMOTRIGINE
Strength: 5MG
Dosage Form/Route: TABLET, FOR SUSPENSION;ORAL
Application: A079204 | Product #001
Applicant: TARO PHARMACEUTICAL INDUSTRIES LTD
Approved: Feb 4, 2009 | RLD: No | RS: No | Type: DISCN